FAERS Safety Report 16430272 (Version 1)
Quarter: 2019Q2

REPORT INFORMATION
  Report Type: Spontaneous
  Country: GB (occurrence: GB)
  Receive Date: 20190614
  Receipt Date: 20190614
  Transmission Date: 20190711
  Serious: Yes (Hospitalization, Other)
  Sender: FDA-Public Use
  Company Number: GB-ACCORD-132591

PATIENT
  Age: 53 Year
  Sex: Female

DRUGS (9)
  1. LENALIDOMIDE [Suspect]
     Active Substance: LENALIDOMIDE
     Indication: AMYLOIDOSIS
     Dates: start: 201505
  2. THALIDOMIDE [Suspect]
     Active Substance: THALIDOMIDE
     Indication: AMYLOIDOSIS
  3. VELCADE [Suspect]
     Active Substance: BORTEZOMIB
     Indication: AMYLOIDOSIS
     Dosage: 1 MG/M2 DAYS 1, 4, 8, AND 11
     Dates: start: 201410
  4. RAMIPRIL. [Suspect]
     Active Substance: RAMIPRIL
     Indication: AMYLOIDOSIS
     Dates: start: 201409
  5. CYCLOPHOSPHAMIDE/CYCLOPHOSPHAMIDE MONOHYDRATE [Suspect]
     Active Substance: CYCLOPHOSPHAMIDE
     Indication: AMYLOIDOSIS
     Dosage: VTD, ALSO RECEIVED 500 MG ON OCT-2014
  6. BISOPROLOL [Concomitant]
     Active Substance: BISOPROLOL
     Indication: AMYLOIDOSIS
     Dates: start: 201406
  7. SPIRONOLACTONE. [Concomitant]
     Active Substance: SPIRONOLACTONE
     Indication: AMYLOIDOSIS
     Dates: start: 201409
  8. DEXAMETHASONE. [Suspect]
     Active Substance: DEXAMETHASONE
     Indication: AMYLOIDOSIS
     Dosage: ALSO RECEIVED 20 MG ON OCT-2014
     Dates: start: 201505
  9. VELCADE [Suspect]
     Active Substance: BORTEZOMIB
     Indication: AMYLOIDOSIS
     Dosage: VTD, ALSO RECEIVED 1 MG/M2 ON OCT-2014

REACTIONS (4)
  - Diarrhoea [Unknown]
  - Dehydration [Recovered/Resolved]
  - Renal impairment [Recovered/Resolved]
  - Vomiting [Unknown]

NARRATIVE: CASE EVENT DATE: 201601
